FAERS Safety Report 8478419 (Version 2)
Quarter: 2013Q3

REPORT INFORMATION
  Report Type: Spontaneous
  Country: US (occurrence: US)
  Receive Date: 20120327
  Receipt Date: 20130731
  Transmission Date: 20140515
  Serious: Yes (Hospitalization, Disabling)
  Sender: FDA-Public Use
  Company Number: US-GLAXOSMITHKLINE-A0834812A

PATIENT
  Age: 49 Year
  Sex: Male
  Weight: 130 kg

DRUGS (1)
  1. AVANDIA [Suspect]
     Indication: DIABETES MELLITUS
     Dosage: 8MG PER DAY
     Route: 048
     Dates: start: 200001, end: 200101

REACTIONS (6)
  - Cardiac disorder [Unknown]
  - Carotid artery disease [Unknown]
  - Stent placement [Unknown]
  - Vascular graft [Unknown]
  - Atrial fibrillation [Unknown]
  - Myocardial infarction [Unknown]
